FAERS Safety Report 9890607 (Version 5)
Quarter: 2014Q2

REPORT INFORMATION
  Report Type: Spontaneous
  Country: DE (occurrence: DE)
  Receive Date: 20140212
  Receipt Date: 20140430
  Transmission Date: 20141212
  Serious: Yes (Other)
  Sender: FDA-Public Use
  Company Number: DE-AMGEN-DEUSP2014009700

PATIENT
  Age: 77 Year
  Sex: Female

DRUGS (2)
  1. ENBREL [Suspect]
     Indication: ANKYLOSING SPONDYLITIS
     Dosage: 50 MG, QWK
     Route: 058
     Dates: start: 200710
  2. METHOTREXATE SODIUM [Suspect]
     Indication: ANKYLOSING SPONDYLITIS
     Dosage: 7.5 MG, WEEKLY
     Route: 065
     Dates: start: 200710, end: 201402

REACTIONS (3)
  - Fear [Unknown]
  - Cataract [Unknown]
  - Herpes zoster [Recovered/Resolved]
